FAERS Safety Report 5009846-2 (Version None)
Quarter: 2006Q2

REPORT INFORMATION
  Report Type: 
  Country: None (occurrence: None)
  Receive Date: 20060523
  Receipt Date: 20060523
  Transmission Date: 20061013
  Serious: Yes (Other)
  Sender: FDA-Public Use
  Company Number: None

PATIENT
  Sex: Female
  Weight: 33 kg

DRUGS (2)
  1. STRATTERA [Suspect]
     Indication: ATTENTION DEFICIT/HYPERACTIVITY DISORDER
     Dosage: 40 MG DAILY
     Dates: start: 20060425, end: 20060426
  2. STRATTERA [Suspect]
     Indication: TOURETTE'S DISORDER
     Dosage: 40 MG DAILY
     Dates: start: 20060425, end: 20060426

REACTIONS (5)
  - ACCIDENT [None]
  - ANGIONEUROTIC OEDEMA [None]
  - GAIT DISTURBANCE [None]
  - HEMIPARESIS [None]
  - SWELLING FACE [None]
